FAERS Safety Report 22936814 (Version 3)
Quarter: 2023Q4

REPORT INFORMATION
  Report Type: Spontaneous
  Country: JP (occurrence: JP)
  Receive Date: 20230912
  Receipt Date: 20231215
  Transmission Date: 20240110
  Serious: Yes (Other)
  Sender: FDA-Public Use
  Company Number: JP-GLAXOSMITHKLINE-JP2023JPN122759

PATIENT

DRUGS (5)
  1. BENLYSTA [Suspect]
     Active Substance: BELIMUMAB
     Indication: Systemic lupus erythematosus
     Dosage: 200 MG, WE
     Route: 058
     Dates: start: 20181213, end: 20190221
  2. PREDONINE [Suspect]
     Active Substance: PREDNISOLONE
     Indication: Systemic lupus erythematosus
     Dosage: 10 MG
     Route: 048
     Dates: start: 20150918
  3. BONALON [Concomitant]
     Active Substance: ALENDRONATE SODIUM
     Indication: Osteoporosis
     Dosage: 35 MG, WE
     Route: 048
  4. ALFAROL [Concomitant]
     Active Substance: ALFACALCIDOL
     Indication: Osteoporosis
     Dosage: 0.25 ?G
     Route: 048
  5. LIVALO [Concomitant]
     Active Substance: PITAVASTATIN CALCIUM
     Indication: Dyslipidaemia
     Dosage: 1MG?2T
     Route: 048

REACTIONS (2)
  - Atypical mycobacterial infection [Recovering/Resolving]
  - Condition aggravated [Recovering/Resolving]

NARRATIVE: CASE EVENT DATE: 20190221
